FAERS Safety Report 8988590 (Version 1)
Quarter: 2012Q4

REPORT INFORMATION
  Report Type: 
  Country: JP (occurrence: JP)
  Receive Date: 20121228
  Receipt Date: 20121228
  Transmission Date: 20130627
  Serious: Yes (Other)
  Sender: FDA-Public Use
  Company Number: JP-TEVA-100#08#2008-03374

PATIENT
  Age: 55 Year
  Sex: Male

DRUGS (3)
  1. CISPLATIN [Suspect]
     Indication: TESTICULAR SEMINOMA (PURE) STAGE II
  2. VINCRISTINE [Concomitant]
  3. PEPLOMYCIN [Concomitant]

REACTIONS (2)
  - Ureteric cancer [Recovered/Resolved]
  - Second primary malignancy [Recovered/Resolved]
